FAERS Safety Report 6245482-8 (Version None)
Quarter: 2009Q2

REPORT INFORMATION
  Report Type: 
  Country: None (occurrence: None)
  Receive Date: 20090619
  Receipt Date: 20090308
  Transmission Date: 20091009
  Serious: No
  Sender: FDA-Public Use
  Company Number: ALL1-2009-00615

PATIENT
  Age: 47 Year
  Sex: Female
  Weight: 77.1 kg

DRUGS (11)
  1. VYVANSE [Suspect]
     Indication: ATTENTION DEFICIT/HYPERACTIVITY DISORDER
     Dosage: 40 MG, 1X/DAY:QD, ORAL
     Route: 048
     Dates: start: 20090105
  2. AMBIEN CR [Concomitant]
  3. LORTREL 5/20 [Concomitant]
  4. FENOFIBRATE [Concomitant]
  5. REQUIP [Concomitant]
  6. CYMBALTA [Concomitant]
  7. TRICOR /000090101/ (ADENOSINE) [Concomitant]
  8. LIPITOR [Concomitant]
  9. SEROQUEL [Concomitant]
  10. LITHIUM CARBONATE [Concomitant]
  11. SYNTHROID [Concomitant]

REACTIONS (1)
  - ABNORMAL SENSATION IN EYE [None]
